FAERS Safety Report 16838843 (Version 1)
Quarter: 2019Q3

REPORT INFORMATION
  Report Type: Spontaneous
  Country: US (occurrence: US)
  Receive Date: 20190731
  Receipt Date: 20190731
  Transmission Date: 20191005
  Serious: No
  Sender: FDA-Public Use
  Company Number: None

PATIENT

DRUGS (2)
  1. PANTOPRAZOLE SODIUM. [Suspect]
     Active Substance: PANTOPRAZOLE SODIUM
     Dosage: ?          OTHER FREQUENCY:SINGLE DOSE VIAL;OTHER ROUTE:INJECTABLE?
  2. BUPIVACAINE HCL 50MG PER 10 ML [Suspect]
     Active Substance: BUPIVACAINE HYDROCHLORIDE
     Dosage: ?          OTHER FREQUENCY:SINGLE DOSE VIAL;OTHER ROUTE:INJECTABLE?

REACTIONS (3)
  - Product appearance confusion [None]
  - Wrong product stored [None]
  - Intercepted product selection error [None]
